FAERS Safety Report 23235189 (Version 2)
Quarter: 2023Q4

REPORT INFORMATION
  Report Type: Spontaneous
  Country: US (occurrence: US)
  Receive Date: 20231128
  Receipt Date: 20231221
  Transmission Date: 20240110
  Serious: Yes (Other)
  Sender: FDA-Public Use
  Company Number: US-PFIZER INC-202300384952

PATIENT
  Age: 74 Year
  Sex: Male

DRUGS (1)
  1. INLYTA [Suspect]
     Active Substance: AXITINIB
     Dosage: 1 DF, 2X/DAY (1 TABLET EVERY 12 HOURS)

REACTIONS (3)
  - Hypertension [Not Recovered/Not Resolved]
  - Cerebrovascular accident [Unknown]
  - Pruritus [Not Recovered/Not Resolved]
